FAERS Safety Report 13557719 (Version 1)
Quarter: 2017Q2

REPORT INFORMATION
  Report Type: Spontaneous
  Country: US (occurrence: US)
  Receive Date: 20170517
  Receipt Date: 20170517
  Transmission Date: 20170830
  Serious: Yes (Other)
  Sender: FDA-Public Use
  Company Number: None

PATIENT
  Age: 69 Year
  Sex: Female
  Weight: 56.25 kg

DRUGS (6)
  1. ASPIRIN. [Concomitant]
     Active Substance: ASPIRIN
  2. UBIQUINOL [Concomitant]
     Active Substance: UBIQUINOL
  3. MAGNESIUM [Concomitant]
     Active Substance: MAGNESIUM
  4. NAMZARIC [Suspect]
     Active Substance: DONEPEZIL HYDROCHLORIDE\MEMANTINE HYDROCHLORIDE
     Indication: DEMENTIA
     Dosage: ?          QUANTITY:28 CAPSULE(S);?
     Route: 048
     Dates: start: 20170512, end: 20170512
  5. PRO-BIOTIC [Concomitant]
  6. BIO CURCUMIN [Concomitant]

REACTIONS (4)
  - Gastrointestinal pain [None]
  - Diarrhoea [None]
  - Vomiting [None]
  - Retching [None]

NARRATIVE: CASE EVENT DATE: 20170512
